FAERS Safety Report 6324176-4 (Version None)
Quarter: 2009Q3

REPORT INFORMATION
  Report Type: 
  Country: None (occurrence: None)
  Receive Date: 20090824
  Receipt Date: 20090518
  Transmission Date: 20100115
  Serious: No
  Sender: FDA-Public Use
  Company Number: US-ABBOTT-09P-163-0574058-00

PATIENT
  Sex: Female

DRUGS (13)
  1. NIASPAN [Suspect]
     Indication: BLOOD CHOLESTEROL INCREASED
     Dosage: 1 IN 1 DAY QHS
     Route: 048
     Dates: start: 20090504, end: 20090513
  2. NIASPAN [Suspect]
     Indication: BLOOD TRIGLYCERIDES INCREASED
  3. BIOSTOLIC [Concomitant]
     Indication: DRUG USE FOR UNKNOWN INDICATION
  4. ASPIRIN [Concomitant]
     Indication: DRUG USE FOR UNKNOWN INDICATION
     Route: 048
  5. POTASSIUM CHLORIDE [Concomitant]
     Indication: DRUG USE FOR UNKNOWN INDICATION
  6. TETURNA [Concomitant]
     Indication: DRUG USE FOR UNKNOWN INDICATION
  7. CARDURA [Concomitant]
     Indication: DRUG USE FOR UNKNOWN INDICATION
  8. ZAROXOLYN [Concomitant]
     Indication: DRUG USE FOR UNKNOWN INDICATION
  9. DILTIAZEM [Concomitant]
     Indication: DRUG USE FOR UNKNOWN INDICATION
  10. VIT D [Concomitant]
     Indication: DRUG USE FOR UNKNOWN INDICATION
  11. VIT E [Concomitant]
     Indication: DRUG USE FOR UNKNOWN INDICATION
  12. SYNTHROID [Concomitant]
     Indication: DRUG USE FOR UNKNOWN INDICATION
  13. CYMBALTA [Concomitant]
     Indication: DRUG USE FOR UNKNOWN INDICATION

REACTIONS (3)
  - ARTHRALGIA [None]
  - SKIN DISCOLOURATION [None]
  - URTICARIA [None]
